APPROVED DRUG PRODUCT: ONDANSETRON HYDROCHLORIDE
Active Ingredient: ONDANSETRON HYDROCHLORIDE
Strength: EQ 2MG BASE/ML
Dosage Form/Route: INJECTABLE;INJECTION
Application: A206846 | Product #001 | TE Code: AP
Applicant: ACCORD HEALTHCARE INC
Approved: Jul 13, 2015 | RLD: No | RS: No | Type: RX